FAERS Safety Report 13565722 (Version 1)
Quarter: 2017Q2

REPORT INFORMATION
  Report Type: Other
  Country: GB (occurrence: IN)
  Receive Date: 20170519
  Receipt Date: 20170519
  Transmission Date: 20170830
  Serious: Yes (Other)
  Sender: FDA-Public Use
  Company Number: IN-INTERNATIONAL MEDICATION SYSTEMS, LIMITED-2021018

PATIENT
  Age: 21 Year
  Sex: Female

DRUGS (5)
  1. FUROSEMIDE. [Concomitant]
     Active Substance: FUROSEMIDE
  2. DIGOXIN. [Concomitant]
     Active Substance: DIGOXIN
  3. LIDOCAIN 1.5% [Suspect]
     Active Substance: LIDOCAINE
     Indication: ANAESTHESIA
  4. SILDENAFIL. [Concomitant]
     Active Substance: SILDENAFIL
  5. NIFEDIPINE. [Concomitant]
     Active Substance: NIFEDIPINE

REACTIONS (2)
  - Mean arterial pressure decreased [Recovered/Resolved]
  - Exposure during pregnancy [Recovered/Resolved]
